FAERS Safety Report 8953541 (Version 1)
Quarter: 2012Q4

REPORT INFORMATION
  Report Type: 
  Country: FR (occurrence: FR)
  Receive Date: 20121206
  Receipt Date: 20121206
  Transmission Date: 20130627
  Serious: Yes (Other)
  Sender: FDA-Public Use
  Company Number: FR-ROCHE-1164918

PATIENT

DRUGS (2)
  1. AVASTIN [Suspect]
     Indication: COLON CANCER
     Route: 065
  2. OXALIPLATIN [Concomitant]
     Indication: COLON CANCER

REACTIONS (1)
  - Pulmonary fibrosis [Unknown]
